FAERS Safety Report 4279011-5 (Version None)
Quarter: 2004Q1

REPORT INFORMATION
  Report Type: 
  Country: None (occurrence: None)
  Receive Date: 20040121
  Receipt Date: 20040113
  Transmission Date: 20041129
  Serious: Yes (Death, Other)
  Sender: FDA-Public Use
  Company Number: US_030997665

PATIENT
  Age: 35 Year
  Sex: Male
  Weight: 57 kg

DRUGS (5)
  1. ZYPREXA [Suspect]
     Indication: BIPOLAR I DISORDER
     Dosage: 7.5 MG
     Dates: start: 20020124
  2. ADDERALL [Concomitant]
  3. ATIVAN [Concomitant]
  4. CELEXA [Concomitant]
  5. CYCLOBENZAPRINE [Concomitant]

REACTIONS (8)
  - COMA [None]
  - DRUG LEVEL INCREASED [None]
  - HYPERTROPHIC CARDIOMYOPATHY [None]
  - PULMONARY CONGESTION [None]
  - PULMONARY OEDEMA [None]
  - RESPIRATORY ARREST [None]
  - RESPIRATORY DEPRESSION [None]
  - RESPIRATORY FAILURE [None]
